FAERS Safety Report 14277766 (Version 1)
Quarter: 2017Q4

REPORT INFORMATION
  Report Type: Spontaneous
  Country: US (occurrence: US)
  Receive Date: 20171212
  Receipt Date: 20171212
  Transmission Date: 20180321
  Serious: No
  Sender: FDA-Public Use
  Company Number: US-PFIZER INC-2017524710

PATIENT
  Age: 60 Year
  Sex: Female

DRUGS (1)
  1. XELJANZ XR [Suspect]
     Active Substance: TOFACITINIB CITRATE
     Dosage: 1 DF (11 MG TABLET), EVERY DAY
     Route: 048
     Dates: start: 201704

REACTIONS (3)
  - Nausea [Unknown]
  - Hot flush [Unknown]
  - Drug ineffective [Unknown]
